FAERS Safety Report 4861157-1 (Version None)
Quarter: 2005Q4

REPORT INFORMATION
  Report Type: 
  Country: None (occurrence: None)
  Receive Date: 20051216
  Receipt Date: 20051202
  Transmission Date: 20060501
  Serious: Yes (Hospitalization)
  Sender: FDA-Public Use
  Company Number: 200514102GDS

PATIENT
  Age: 65 Year
  Sex: Male

DRUGS (6)
  1. ASPIRIN [Suspect]
     Dosage: 100 MG, TOTAL DAILY, ORAL
     Route: 048
     Dates: end: 20051020
  2. ACENOCOUMAROL [Suspect]
     Dosage: 1 MG, TOTAL DAILY, ORAL
     Route: 048
     Dates: end: 20051020
  3. TORSEMIDE [Concomitant]
  4. AMIODARONE [Concomitant]
  5. ROSIGLITAZONE [Concomitant]
  6. GLIBENCLAMIDE [Concomitant]

REACTIONS (8)
  - ANAEMIA [None]
  - CARDIAC FAILURE [None]
  - GASTROINTESTINAL HAEMORRHAGE [None]
  - HEPATIC CIRRHOSIS [None]
  - INTERNATIONAL NORMALISED RATIO INCREASED [None]
  - IRON DEFICIENCY [None]
  - TELANGIECTASIA [None]
  - VARICES OESOPHAGEAL [None]
